FAERS Safety Report 4465746-8 (Version None)
Quarter: 2004Q3

REPORT INFORMATION
  Report Type: 
  Country: None (occurrence: None)
  Receive Date: 20040929
  Receipt Date: 20040929
  Transmission Date: 20050211
  Serious: Yes (Other)
  Sender: FDA-Public Use
  Company Number: None

PATIENT
  Age: 20 Year
  Sex: Female
  Weight: 45.3597 kg

DRUGS (4)
  1. AMOXICILLIN [Suspect]
     Indication: DENTAL DISCOMFORT
     Dosage: 500 MG TID ORAL
     Route: 048
     Dates: start: 20040723, end: 20040725
  2. AMOXICILLIN [Suspect]
     Indication: INFECTION
     Dosage: 500 MG TID ORAL
     Route: 048
     Dates: start: 20040723, end: 20040725
  3. VICODIN [Suspect]
     Indication: DENTAL DISCOMFORT
     Dosage: 5/500 MG
     Dates: start: 20040723, end: 20040724
  4. BIRTH CONTROL [Concomitant]

REACTIONS (3)
  - PRURITUS [None]
  - RASH GENERALISED [None]
  - SWELLING FACE [None]
